FAERS Safety Report 6379209-6 (Version None)
Quarter: 2009Q3

REPORT INFORMATION
  Report Type: 
  Country: None (occurrence: None)
  Receive Date: 20090923
  Receipt Date: 20090923
  Transmission Date: 20100115
  Serious: Yes (Other)
  Sender: FDA-Public Use
  Company Number: None

PATIENT
  Sex: Male
  Weight: 99.7913 kg

DRUGS (2)
  1. NEXAVAR [Suspect]
     Indication: HEPATIC NEOPLASM MALIGNANT
     Dosage: 1 TABLET TWICE DAILY PO
     Route: 048
     Dates: start: 20090824, end: 20090924
  2. NEXAVAR [Suspect]
     Indication: IRON METABOLISM DISORDER
     Dosage: 1 TABLET TWICE DAILY PO
     Route: 048
     Dates: start: 20090824, end: 20090924

REACTIONS (2)
  - FURUNCLE [None]
  - PURULENCE [None]
